FAERS Safety Report 6724105-5 (Version None)
Quarter: 2010Q2

REPORT INFORMATION
  Report Type: 
  Country: None (occurrence: None)
  Receive Date: 20100513
  Receipt Date: 20100505
  Transmission Date: 20101027
  Serious: Yes (Hospitalization)
  Sender: FDA-Public Use
  Company Number: US-ASTRAZENECA-2010SE20643

PATIENT
  Sex: Male

DRUGS (13)
  1. SEROQUEL [Suspect]
     Dosage: TAKING 1600 TO 1200MG, DAILY
     Route: 048
  2. HYDROCHLOROTHIAZIDE [Concomitant]
  3. VENLAFAXINE [Concomitant]
  4. SIMVASTATIN [Concomitant]
  5. GABAPENTIN [Concomitant]
  6. TRAMADOL HCL [Concomitant]
  7. METFORMIN HYDROCHLORIDE [Concomitant]
  8. VICODIN [Concomitant]
  9. INSULIN [Concomitant]
  10. ESOMEPRAZOLE [Concomitant]
  11. AMLODIPINE BESYLATE [Concomitant]
  12. LOSARTAN POTASSIUM [Concomitant]
  13. DICLOFENAC [Concomitant]

REACTIONS (3)
  - BLOOD GLUCOSE ABNORMAL [None]
  - BLOOD POTASSIUM ABNORMAL [None]
  - OVERDOSE [None]
